FAERS Safety Report 16724586 (Version 1)
Quarter: 2019Q3

REPORT INFORMATION
  Report Type: Spontaneous
  Country: US (occurrence: US)
  Receive Date: 20190821
  Receipt Date: 20190821
  Transmission Date: 20191005
  Serious: Yes (Death)
  Sender: FDA-Public Use
  Company Number: US-GW PHARMA-201908USGW2775

PATIENT

DRUGS (1)
  1. EPIDIOLEX [Suspect]
     Active Substance: CANNABIDIOL
     Indication: LENNOX-GASTAUT SYNDROME
     Dosage: 560 MILLIGRAM, BID
     Dates: start: 2019

REACTIONS (2)
  - Incorrect route of product administration [Unknown]
  - Death [Fatal]

NARRATIVE: CASE EVENT DATE: 20190724
